FAERS Safety Report 9510747 (Version 2)
Quarter: 2013Q3

REPORT INFORMATION
  Report Type: Spontaneous
  Country: US (occurrence: US)
  Receive Date: 20130910
  Receipt Date: 20130923
  Transmission Date: 20140515
  Serious: Yes (Hospitalization, Other)
  Sender: FDA-Public Use
  Company Number: US-PAR PHARMACEUTICAL, INC-2013SCPR006975

PATIENT
  Sex: 0

DRUGS (1)
  1. LEVETIRACETAM [Suspect]
     Indication: EPILEPSY
     Dosage: UNK, UNKNOWN
     Route: 065

REACTIONS (4)
  - Toxic encephalopathy [Recovered/Resolved]
  - Renal failure acute [Recovering/Resolving]
  - Metabolic acidosis [Recovered/Resolved]
  - Respiratory failure [Recovered/Resolved]
